FAERS Safety Report 11349894 (Version 4)
Quarter: 2015Q3

REPORT INFORMATION
  Report Type: Report from Study
  Country: US (occurrence: US)
  Receive Date: 20150807
  Receipt Date: 20150910
  Transmission Date: 20151125
  Serious: Yes (Hospitalization, Other)
  Sender: FDA-Public Use
  Company Number: US-GILEAD-2015-0162251

PATIENT
  Age: 68 Year
  Sex: Female

DRUGS (4)
  1. AMBRISENTAN [Suspect]
     Active Substance: AMBRISENTAN
     Indication: PULMONARY HYPERTENSION
     Dosage: 5 MG, QD
     Route: 065
     Dates: start: 20150616, end: 201507
  2. ADCIRCA [Concomitant]
     Active Substance: TADALAFIL
     Dosage: UNK
  3. COUMADIN [Concomitant]
     Active Substance: WARFARIN SODIUM
     Dosage: UNK
  4. AMBRISENTAN [Suspect]
     Active Substance: AMBRISENTAN
     Indication: PULMONARY VASCULAR RESISTANCE ABNORMALITY

REACTIONS (8)
  - Pulmonary oedema [Unknown]
  - Hypopnoea [Unknown]
  - Respiratory failure [Unknown]
  - Respiratory rate increased [Unknown]
  - Respiratory distress [Unknown]
  - Malaise [Unknown]
  - Pleural effusion [Unknown]
  - Oedema peripheral [Unknown]
